FAERS Safety Report 9221656 (Version 2)
Quarter: 2013Q2

REPORT INFORMATION
  Report Type: Spontaneous
  Country: DE (occurrence: None)
  Receive Date: 20130408
  Receipt Date: 20130423
  Transmission Date: 20140414
  Serious: Yes (Other)
  Sender: FDA-Public Use
  Company Number: NGX_01679_2013

PATIENT
  Age: 57 Year
  Sex: Female
  Weight: 80 kg

DRUGS (5)
  1. QUTENZA [Suspect]
     Indication: NEURALGIA
     Dosage: [DF [PATCH,3RD APPLICATION, INTERVAL EVERY 3 MONTHS] TOPICAL]?
     Route: 061
     Dates: start: 20130325, end: 20130325
  2. LIDOCAIN /00033401/ [Concomitant]
  3. JURNISTA [Concomitant]
  4. GABAPENTIN [Concomitant]
  5. CYMBALTA [Concomitant]

REACTIONS (2)
  - Burns second degree [None]
  - Haematoma [None]
